FAERS Safety Report 10912280 (Version 2)
Quarter: 2015Q2

REPORT INFORMATION
  Report Type: Spontaneous
  Country: US (occurrence: US)
  Receive Date: 20150313
  Receipt Date: 20150401
  Transmission Date: 20150821
  Serious: Yes (Other)
  Sender: FDA-Public Use
  Company Number: US-PFIZER INC-2015086123

PATIENT
  Age: 65 Year
  Sex: Female
  Weight: 68 kg

DRUGS (10)
  1. DEXTROAMPHETAMINE [Concomitant]
     Active Substance: DEXTROAMPHETAMINE
     Indication: NARCOLEPSY
     Dosage: 5 MG, 2X/DAY
  2. SOMA [Concomitant]
     Active Substance: CARISOPRODOL
     Indication: BACK PAIN
     Dosage: 350 MG FOR UP TO 4 TIMES A DAY AS NEEDED
     Route: 048
     Dates: start: 201409
  3. PREDNISOLONE ACETATE. [Concomitant]
     Active Substance: PREDNISOLONE ACETATE
     Indication: GLAUCOMATOCYCLITIC CRISES
     Dosage: 1 DROP BOTH EYES, 2X/DAY
     Route: 047
  4. DEXTROAMPHETAMINE [Concomitant]
     Active Substance: DEXTROAMPHETAMINE
     Indication: NARCOLEPSY
     Dosage: 15 MG, 1X/DAY
  5. TYLENOL WITH CODEINE [Concomitant]
     Active Substance: ACETAMINOPHEN\CODEINE PHOSPHATE
     Dosage: 300/30 MG 3-4 TIMES A DAY AS NEEDED
     Route: 048
  6. LYRICA [Suspect]
     Active Substance: PREGABALIN
     Indication: NEURALGIA
  7. LYRICA [Suspect]
     Active Substance: PREGABALIN
     Indication: MYALGIA
  8. BRIMONIDINE TARTRATE. [Concomitant]
     Active Substance: BRIMONIDINE TARTRATE
     Indication: GLAUCOMATOCYCLITIC CRISES
     Dosage: 1 DROP IN EACH EYE, 2X/DAY
     Route: 047
  9. LYRICA [Suspect]
     Active Substance: PREGABALIN
     Indication: PAIN
     Dosage: 75 MG, 2X/DAY
     Route: 048
     Dates: start: 201412, end: 201412
  10. ACETAMINOPHEN + CODEINE [Concomitant]
     Dosage: UNK
     Dates: start: 201408

REACTIONS (4)
  - Feeling of despair [Unknown]
  - Crying [Unknown]
  - Schwannoma [Unknown]
  - Feeling abnormal [Unknown]
